FAERS Safety Report 7905194-9 (Version None)
Quarter: 2011Q4

REPORT INFORMATION
  Report Type: 
  Country: None (occurrence: None)
  Receive Date: 20111109
  Receipt Date: 20111031
  Transmission Date: 20120403
  Serious: Yes (Other)
  Sender: FDA-Public Use
  Company Number: US-ASTRAZENECA-2011SE65866

PATIENT
  Age: 55 Year
  Sex: Male

DRUGS (4)
  1. LISINOPRIL [Suspect]
     Route: 048
  2. ATENOLOL [Suspect]
     Route: 048
  3. NEXIUM [Suspect]
     Route: 048
  4. BLOOD PRESSURE MEDICATION [Concomitant]

REACTIONS (1)
  - ATRIAL FIBRILLATION [None]
